FAERS Safety Report 9095985 (Version 1)
Quarter: 2013Q1

REPORT INFORMATION
  Report Type: Report from Study
  Country: EG (occurrence: EG)
  Receive Date: 20130207
  Receipt Date: 20130207
  Transmission Date: 20140127
  Serious: Yes (Other)
  Sender: FDA-Public Use
  Company Number: EG-ROCHE-1187369

PATIENT
  Age: 49 Year
  Sex: Female
  Weight: 100 kg

DRUGS (5)
  1. TRASTUZUMAB [Suspect]
     Indication: BREAST CANCER
     Route: 042
     Dates: start: 20110131, end: 20120220
  2. GRANISETRON [Concomitant]
     Route: 042
     Dates: start: 20110131
  3. DEXAMETHASONE [Concomitant]
     Route: 042
     Dates: start: 20110131
  4. OMEPRAZOL [Concomitant]
     Route: 048
     Dates: start: 20110131
  5. ALLOPURINOL [Concomitant]
     Route: 048
     Dates: start: 20110131

REACTIONS (1)
  - Disease recurrence [Not Recovered/Not Resolved]
